FAERS Safety Report 6999174-8 (Version None)
Quarter: 2010Q3

REPORT INFORMATION
  Report Type: 
  Country: None (occurrence: None)
  Receive Date: 20100920
  Receipt Date: 20100217
  Transmission Date: 20110219
  Serious: No
  Sender: FDA-Public Use
  Company Number: US-ASTRAZENECA-2010SE06979

PATIENT
  Age: 59 Year
  Sex: Female
  Weight: 59 kg

DRUGS (8)
  1. SEROQUEL XR [Suspect]
     Indication: SCHIZOAFFECTIVE DISORDER BIPOLAR TYPE
     Route: 048
  2. SEROQUEL XR [Suspect]
     Route: 048
  3. SEROQUEL XR [Suspect]
     Route: 048
  4. SEROQUEL XR [Suspect]
     Route: 048
     Dates: start: 20090101
  5. LITHIUM CARBONATE [Concomitant]
  6. LAMICTAL [Concomitant]
  7. ASPIRIN [Concomitant]
  8. B 12 SHOT [Concomitant]

REACTIONS (5)
  - ARTHRITIS [None]
  - CHEST DISCOMFORT [None]
  - MENTAL DISORDER DUE TO A GENERAL MEDICAL CONDITION [None]
  - MUSCULOSKELETAL STIFFNESS [None]
  - WEIGHT INCREASED [None]
